FAERS Safety Report 8830294 (Version 1)
Quarter: 2012Q4

REPORT INFORMATION
  Report Type: 
  Country: US (occurrence: US)
  Receive Date: 20121009
  Receipt Date: 20121009
  Transmission Date: 20130627
  Serious: Yes (Other)
  Sender: FDA-Public Use
  Company Number: US-MERCK-2012SP012282

PATIENT
  Sex: Female

DRUGS (3)
  1. PEGINTRON [Suspect]
     Indication: HEPATITIS C
     Dosage: UNK UNK, Unknown
     Dates: start: 20120101, end: 20120728
  2. VICTRELIS [Suspect]
     Indication: HEPATITIS C
     Dosage: UNK UNK, Unknown
     Route: 065
     Dates: start: 20120129, end: 20120728
  3. REBETOL [Suspect]
     Indication: HEPATITIS C
     Dosage: UNK
     Dates: start: 20120101, end: 20120728

REACTIONS (5)
  - Haematochezia [Unknown]
  - Epistaxis [Unknown]
  - Headache [Unknown]
  - Skin discolouration [Unknown]
  - Arthralgia [Unknown]
